FAERS Safety Report 10195625 (Version 1)
Quarter: 2014Q2

REPORT INFORMATION
  Report Type: Spontaneous
  Country: US (occurrence: US)
  Receive Date: 20140527
  Receipt Date: 20140527
  Transmission Date: 20141212
  Serious: No
  Sender: FDA-Public Use
  Company Number: US-009507513-1405USA004236

PATIENT
  Age: 28 Year
  Sex: Female

DRUGS (3)
  1. PEGINTRON [Suspect]
     Indication: HEPATITIS C
     Dosage: REDIPEN, 0.5 ML, ONCE A WEEK
     Dates: start: 20140409
  2. REBETOL [Suspect]
     Dosage: UNK
     Route: 048
  3. SOVALDI [Suspect]
     Dosage: UNK
     Route: 048

REACTIONS (3)
  - Contusion [Recovering/Resolving]
  - Drug dose omission [Unknown]
  - Product quality issue [Unknown]
